FAERS Safety Report 4987873-9 (Version None)
Quarter: 2006Q2

REPORT INFORMATION
  Report Type: 
  Country: None (occurrence: None)
  Receive Date: 20060427
  Receipt Date: 20060427
  Transmission Date: 20061013
  Serious: Yes (Hospitalization)
  Sender: FDA-Public Use
  Company Number: None

PATIENT
  Age: 58 Year
  Sex: Female

DRUGS (1)
  1. PROPOFOL [Suspect]
     Indication: SEDATION
     Dosage: INTRAVENOUS;10.0
     Route: 042
     Dates: start: 20060308, end: 20060308

REACTIONS (1)
  - METABOLIC ACIDOSIS [None]
